FAERS Safety Report 18219583 (Version 1)
Quarter: 2020Q3

REPORT INFORMATION
  Report Type: Spontaneous
  Country: CA (occurrence: CA)
  Receive Date: 20200901
  Receipt Date: 20200901
  Transmission Date: 20201103
  Serious: Yes (Hospitalization)
  Sender: FDA-Public Use
  Company Number: CA-TEVA-2020-CA-1820101

PATIENT
  Age: 8 Year
  Sex: Male
  Weight: 50 kg

DRUGS (44)
  1. FLUDARABINE [Concomitant]
     Active Substance: FLUDARABINE PHOSPHATE
  2. LANSOPRAZOLE. [Concomitant]
     Active Substance: LANSOPRAZOLE
  3. MORPHINE [Concomitant]
     Active Substance: MORPHINE
  4. MYCOPHENOLATE MOFETIL. [Concomitant]
     Active Substance: MYCOPHENOLATE MOFETIL
  5. NIFEDIPINE. [Concomitant]
     Active Substance: NIFEDIPINE
  6. POLYETHYLENE GLYCOL [Concomitant]
     Active Substance: POLYETHYLENE GLYCOLS
  7. PROPRANOLOL [Concomitant]
     Active Substance: PROPRANOLOL HYDROCHLORIDE
  8. ANTI?THYMOCYTE GLOBULIN (RABBIT) NOS [Concomitant]
     Active Substance: LAPINE T-LYMPHOCYTE IMMUNE GLOBULIN
  9. METHYLPREDNISOLONE NOS [Concomitant]
     Active Substance: METHYLPREDNISOLONE
  10. METOCLOPRAMIDE. [Concomitant]
     Active Substance: METOCLOPRAMIDE
  11. ACETAMINOPHEN. [Concomitant]
     Active Substance: ACETAMINOPHEN
  12. HEPARIN CALCIUM [Concomitant]
     Active Substance: HEPARIN CALCIUM
  13. TOCOPHEROL [Concomitant]
     Active Substance: TOCOPHEROL
  14. TRANEXAMIC ACID. [Concomitant]
     Active Substance: TRANEXAMIC ACID
  15. FLUCONAZOLE. [Concomitant]
     Active Substance: FLUCONAZOLE
  16. LORAZEPAM. [Concomitant]
     Active Substance: LORAZEPAM
  17. MYCAMINE [Concomitant]
     Active Substance: MICAFUNGIN SODIUM
  18. RANITIDINE. [Concomitant]
     Active Substance: RANITIDINE
  19. VANCOMYCIN [Concomitant]
     Active Substance: VANCOMYCIN
  20. ALTEPLASE (T?PA) [Concomitant]
  21. LEVETIRACETAM. [Concomitant]
     Active Substance: LEVETIRACETAM
  22. PIPERACILLIN AND TAZOBACTAM [Concomitant]
     Active Substance: PIPERACILLIN SODIUM\TAZOBACTAM SODIUM
  23. PROTAMINE SULFATE INJECTION, USP [Concomitant]
     Active Substance: PROTAMINE SULFATE
  24. ZOLEDRONIC ACID [Concomitant]
     Active Substance: ZOLEDRONIC ACID
  25. BUSULFAN. [Concomitant]
     Active Substance: BUSULFAN
  26. DEXAMETHASONE. [Concomitant]
     Active Substance: DEXAMETHASONE
  27. EPINEPHRINE. [Concomitant]
     Active Substance: EPINEPHRINE
  28. FAMCICLOVIR. [Concomitant]
     Active Substance: FAMCICLOVIR
  29. HYDROCORTISONE. [Concomitant]
     Active Substance: HYDROCORTISONE
  30. URSODEOXYCHOLIC ACID [Concomitant]
     Active Substance: URSODIOL
  31. ACYCLOVIR. [Concomitant]
     Active Substance: ACYCLOVIR
  32. AMLODIPINE [Concomitant]
     Active Substance: AMLODIPINE BESYLATE
  33. CHLORHEXIDINE [Concomitant]
     Active Substance: CHLORHEXIDINE
  34. DIPHENHYDRAMINE. [Concomitant]
     Active Substance: DIPHENHYDRAMINE
  35. MAGNESIUM [Concomitant]
     Active Substance: MAGNESIUM
  36. PREDNISONE. [Suspect]
     Active Substance: PREDNISONE
     Indication: RHEUMATOID ARTHRITIS
     Dosage: 10 MILLIGRAM DAILY;
     Route: 048
  37. CALCIUM [Concomitant]
     Active Substance: CALCIUM
  38. CEFTAZIDIME. [Concomitant]
     Active Substance: CEFTAZIDIME
  39. CYCLOSPORINE. [Concomitant]
     Active Substance: CYCLOSPORINE
  40. DIMENHYDRINATE. [Concomitant]
     Active Substance: DIMENHYDRINATE
  41. FUROSEMIDE. [Concomitant]
     Active Substance: FUROSEMIDE
  42. ONDANSETRON [Concomitant]
     Active Substance: ONDANSETRON
  43. PENTAMIDINE ISETHIONATE INJ 300MG/VIAL BP [Concomitant]
  44. SENNOSIDES. [Concomitant]
     Active Substance: SENNOSIDES

REACTIONS (6)
  - Cushing^s syndrome [Unknown]
  - Growth retardation [Unknown]
  - Obesity [Unknown]
  - Bone marrow transplant [Unknown]
  - Cataract [Unknown]
  - Osteoporosis [Unknown]
